FAERS Safety Report 14892445 (Version 1)
Quarter: 2018Q2

REPORT INFORMATION
  Report Type: Report from Study
  Country: RS (occurrence: RS)
  Receive Date: 20180514
  Receipt Date: 20180514
  Transmission Date: 20180711
  Serious: Yes (Death, Life-Threatening, Hospitalization, Other)
  Sender: FDA-Public Use
  Company Number: RS-BAYER-2018-085803

PATIENT
  Age: 48 Year
  Sex: Female

DRUGS (1)
  1. BETAFERON [Suspect]
     Active Substance: INTERFERON BETA-1B
     Indication: MULTIPLE SCLEROSIS
     Dosage: UNK
     Dates: start: 2009, end: 20180330

REACTIONS (2)
  - Craniocerebral injury [Fatal]
  - Completed suicide [Fatal]

NARRATIVE: CASE EVENT DATE: 20180401
